FAERS Safety Report 7771936-9 (Version None)
Quarter: 2011Q3

REPORT INFORMATION
  Report Type: 
  Country: None (occurrence: None)
  Receive Date: 20110922
  Receipt Date: 20100827
  Transmission Date: 20111222
  Serious: No
  Sender: FDA-Public Use
  Company Number: US-ASTRAZENECA-2010SE40560

PATIENT
  Sex: Male
  Weight: 103.4 kg

DRUGS (2)
  1. SEROQUEL [Suspect]
     Route: 048
     Dates: start: 20090101
  2. SEROQUEL [Suspect]
     Route: 048
     Dates: start: 20090101

REACTIONS (11)
  - GAIT DISTURBANCE [None]
  - FEAR [None]
  - WEIGHT INCREASED [None]
  - FEELING ABNORMAL [None]
  - ANXIETY [None]
  - SPEECH DISORDER [None]
  - RESTLESS LEGS SYNDROME [None]
  - BALANCE DISORDER [None]
  - TACHYPHRENIA [None]
  - FEELINGS OF WORTHLESSNESS [None]
  - DISTURBANCE IN ATTENTION [None]
